FAERS Safety Report 20264126 (Version 1)
Quarter: 2021Q4

REPORT INFORMATION
  Report Type: Spontaneous
  Country: IE (occurrence: IE)
  Receive Date: 20211231
  Receipt Date: 20211231
  Transmission Date: 20220303
  Serious: Yes (Disabling, Other)
  Sender: FDA-Public Use
  Company Number: IE-ABBVIE-21K-229-4215698-00

PATIENT

DRUGS (1)
  1. EPILIM [Suspect]
     Active Substance: VALPROATE SODIUM
     Indication: Maternal exposure timing unspecified
     Route: 064

REACTIONS (12)
  - Foetal anticonvulsant syndrome [Unknown]
  - Congenital bladder anomaly [Unknown]
  - Mental impairment [Unknown]
  - Incontinence [Unknown]
  - Asthma [Unknown]
  - Epilepsy [Unknown]
  - Paraplegia [Unknown]
  - Learning disability [Unknown]
  - Spina bifida [Unknown]
  - Developmental delay [Unknown]
  - Congenital genital malformation [Unknown]
  - Foetal exposure during pregnancy [Unknown]
